FAERS Safety Report 8823898 (Version 2)
Quarter: 2013Q4

REPORT INFORMATION
  Report Type: Spontaneous
  Country: BR (occurrence: BR)
  Receive Date: 20121003
  Receipt Date: 20131031
  Transmission Date: 20140711
  Serious: Yes (Other)
  Sender: FDA-Public Use
  Company Number: BR-009507513-1210BRA001845

PATIENT
  Age: 58 Year
  Sex: Female

DRUGS (3)
  1. ZOCOR [Suspect]
     Dosage: UNK
     Route: 048
     Dates: start: 201208
  2. CRESTOR [Concomitant]
     Dosage: 10 MG, UNK
     Route: 048
  3. CRESTOR [Concomitant]
     Dosage: 20 MG, UNK
     Route: 048
     Dates: end: 201208

REACTIONS (3)
  - Venous occlusion [Unknown]
  - Tachycardia [Not Recovered/Not Resolved]
  - Insomnia [Not Recovered/Not Resolved]
